FAERS Safety Report 20966871 (Version 1)
Quarter: 2022Q2

REPORT INFORMATION
  Report Type: Report from Study
  Country: JP (occurrence: JP)
  Receive Date: 20220616
  Receipt Date: 20220616
  Transmission Date: 20220720
  Serious: Yes (Other)
  Sender: FDA-Public Use
  Company Number: JP-Accord-266002

PATIENT

DRUGS (1)
  1. CISPLATIN [Suspect]
     Active Substance: CISPLATIN
     Indication: Hepatocellular carcinoma
     Dosage: HEPATIC ARTERIAL INFUSION, MAXIMUM DOSE, 100 MG/M2) AT A RATE OF 2 ML/MIN

REACTIONS (1)
  - Ascites [Unknown]
